FAERS Safety Report 8981551 (Version 1)
Quarter: 2012Q4

REPORT INFORMATION
  Report Type: 
  Country: US (occurrence: US)
  Receive Date: 20121212
  Receipt Date: 20121212
  Transmission Date: 20130627
  Serious: Yes (Death)
  Sender: FDA-Public Use
  Company Number: US-ASTELLAS-1119288

PATIENT
  Sex: Male

DRUGS (7)
  1. TARCEVA [Suspect]
     Indication: HEPATIC NEOPLASM MALIGNANT
     Route: 065
  2. TARCEVA [Suspect]
     Indication: HEPATIC NEOPLASM MALIGNANT
  3. TARCEVA [Suspect]
     Indication: BILE DUCT CANCER
  4. TARCEVA [Suspect]
     Indication: HEPATIC NEOPLASM MALIGNANT
  5. TARCEVA [Suspect]
     Indication: HEPATOBLASTOMA
  6. GEMZAR [Concomitant]
  7. XELODA [Concomitant]

REACTIONS (2)
  - Death [Fatal]
  - Disease progression [Unknown]
